FAERS Safety Report 14383110 (Version 3)
Quarter: 2021Q3

REPORT INFORMATION
  Report Type: Spontaneous
  Country: FR (occurrence: FR)
  Receive Date: 20180115
  Receipt Date: 20210730
  Transmission Date: 20211014
  Serious: Yes (Hospitalization)
  Sender: FDA-Public Use
  Company Number: FR-ROCHE-2052484

PATIENT
  Age: 41 Year
  Sex: Female
  Weight: 55 kg

DRUGS (30)
  1. RITUXIMAB. [Suspect]
     Active Substance: RITUXIMAB
     Route: 065
     Dates: start: 20150709
  2. NEORAL [Concomitant]
     Active Substance: CYCLOSPORINE
     Indication: IMMUNOSUPPRESSION
     Dosage: 50 MG, QD
     Dates: start: 1986
  3. GRANOCYTE [Concomitant]
     Active Substance: LENOGRASTIM
     Indication: NEUTROPENIA
     Dosage: UNK
     Dates: start: 20151102, end: 20151102
  4. DELURSAN [Concomitant]
     Active Substance: URSODIOL
     Dosage: 500 MG, BID
  5. RITUXIMAB. [Suspect]
     Active Substance: RITUXIMAB
     Indication: LYMPHOMA
     Route: 065
     Dates: start: 20150825, end: 20150825
  6. RITUXIMAB. [Suspect]
     Active Substance: RITUXIMAB
     Route: 065
     Dates: start: 20150908, end: 20150908
  7. BRILIQUE [Concomitant]
     Active Substance: TICAGRELOR
     Indication: CARDIAC FAILURE
     Dosage: 90 MG, BID
     Dates: start: 20150812
  8. CLOPIDOGREL [Concomitant]
     Active Substance: CLOPIDOGREL BISULFATE
     Indication: CARDIAC FAILURE
     Dates: start: 20150811, end: 20150811
  9. PERINDOPRIL [Concomitant]
     Active Substance: PERINDOPRIL
     Indication: HYPERTENSION
     Dates: end: 20151126
  10. IVABRADINE HYDROCHLORIDE [Concomitant]
     Active Substance: IVABRADINE HYDROCHLORIDE
     Indication: CARDIAC FAILURE
     Dosage: 2.5 MG, BID
     Dates: start: 20150925
  11. LASILIX [Concomitant]
     Active Substance: FUROSEMIDE
     Dosage: UNK
  12. GEMCITABINE. [Suspect]
     Active Substance: GEMCITABINE
     Indication: LYMPHOMA
     Route: 065
     Dates: start: 20150507, end: 20150908
  13. DAKLINZA [Suspect]
     Active Substance: DACLATASVIR
     Indication: HEPATITIS C
     Route: 048
     Dates: start: 20150203, end: 20150428
  14. RITUXIMAB. [Suspect]
     Active Substance: RITUXIMAB
     Route: 065
     Dates: start: 20150618
  15. RITUXIMAB. [Suspect]
     Active Substance: RITUXIMAB
     Route: 065
     Dates: start: 20150825, end: 20150825
  16. OXALIPLATIN. [Suspect]
     Active Substance: OXALIPLATIN
     Indication: LYMPHOMA
     Route: 065
     Dates: start: 20150507, end: 20150908
  17. SOVALDI [Suspect]
     Active Substance: SOFOSBUVIR
     Indication: HEPATITIS C
     Dosage: 4
     Route: 048
     Dates: start: 20150203, end: 20150428
  18. OMEPRAZOLE. [Concomitant]
     Active Substance: OMEPRAZOLE
     Dosage: 20 MG, QD
  19. PENTAMIDINE ISETHIONATE. [Concomitant]
     Active Substance: PENTAMIDINE ISETHIONATE
     Dosage: UNK
  20. ASPEGIC [Concomitant]
  21. RITUXIMAB. [Suspect]
     Active Substance: RITUXIMAB
     Route: 065
     Dates: start: 20150521
  22. RITUXIMAB. [Suspect]
     Active Substance: RITUXIMAB
     Route: 065
     Dates: start: 20150908, end: 20150908
  23. CELLTOP [Suspect]
     Active Substance: ETOPOSIDE
     Indication: LYMPHOMA
     Route: 048
     Dates: start: 20151019, end: 20151102
  24. ENDOXAN [Concomitant]
     Active Substance: CYCLOPHOSPHAMIDE
     Indication: LYMPHOMA
     Dates: start: 20151126
  25. KAYEXALATE [Concomitant]
     Active Substance: SODIUM POLYSTYRENE SULFONATE
     Dosage: UNK
  26. VIREAD [Suspect]
     Active Substance: TENOFOVIR DISOPROXIL FUMARATE
     Indication: HEPATITIS B
     Route: 048
     Dates: start: 20120516
  27. REBETOL [Suspect]
     Active Substance: RIBAVIRIN
     Indication: HEPATITIS C
     Dosage: 400 MG, 2 PER DAY
     Route: 048
     Dates: start: 20150203, end: 20150428
  28. SOLUPRED (FRANCE) [Concomitant]
     Active Substance: PREDNISOLONE SODIUM METAZOATE
     Dosage: 5 MG, QD
  29. PRAVASTATIN. [Concomitant]
     Active Substance: PRAVASTATIN
     Indication: CARDIAC FAILURE
  30. PLAVIX [Concomitant]
     Active Substance: CLOPIDOGREL BISULFATE
     Indication: CARDIAC FAILURE
     Dates: end: 201508

REACTIONS (4)
  - Neutropenia [Recovered/Resolved]
  - Anaemia [Unknown]
  - Left ventricular failure [Not Recovered/Not Resolved]
  - Diffuse large B-cell lymphoma [Not Recovered/Not Resolved]

NARRATIVE: CASE EVENT DATE: 2015
